FAERS Safety Report 9266590 (Version 2)
Quarter: 2013Q4

REPORT INFORMATION
  Report Type: Report from Study
  Country: CA (occurrence: CA)
  Receive Date: 20130502
  Receipt Date: 20131209
  Transmission Date: 20140711
  Serious: Yes (Other)
  Sender: FDA-Public Use
  Company Number: PHHY2013CA042637

PATIENT
  Age: 89 Year
  Sex: Female

DRUGS (2)
  1. ZOMETA [Suspect]
     Indication: BREAST CANCER METASTATIC
     Dosage: 4 MG, EVERY 12 WEEKS
     Route: 042
  2. ZOMETA [Suspect]
     Dosage: 3.3 MG, EVERY 12 WEEKS
     Route: 042
     Dates: start: 20120701

REACTIONS (5)
  - Cardiac failure [Unknown]
  - Cerebrovascular accident [Unknown]
  - Dementia [Unknown]
  - Confusional state [Unknown]
  - Tumour marker increased [Unknown]
